FAERS Safety Report 7522910-9 (Version None)
Quarter: 2011Q2

REPORT INFORMATION
  Report Type: 
  Country: None (occurrence: None)
  Receive Date: 20110603
  Receipt Date: 20110525
  Transmission Date: 20111010
  Serious: Yes (Other)
  Sender: FDA-Public Use
  Company Number: PHHY2011IS46015

PATIENT
  Age: 18 Year
  Sex: Female

DRUGS (1)
  1. RITALIN [Suspect]
     Dosage: 2-3 TABLETS A DAY

REACTIONS (3)
  - HEPATITIS A [None]
  - HIV INFECTION [None]
  - INTENTIONAL DRUG MISUSE [None]
